FAERS Safety Report 9490768 (Version 1)
Quarter: 2013Q3

REPORT INFORMATION
  Report Type: Spontaneous
  Country: TR (occurrence: None)
  Receive Date: 20130826
  Receipt Date: 20130826
  Transmission Date: 20140515
  Serious: Yes (Other)
  Sender: FDA-Public Use
  Company Number: 1856233

PATIENT
  Age: 51 Year
  Sex: Female
  Weight: 67 kg

DRUGS (1)
  1. CARBOPLATIN [Suspect]
     Indication: PRODUCT USED FOR UNKNOWN INDICATION
     Dosage: 150 ML WAS ADMINISTERED WHEN ADVERSE REACTION HAVE OCCURED, INTRAVENOUS
     Dates: start: 20130729, end: 20130729

REACTIONS (3)
  - Petechiae [None]
  - Tachycardia [None]
  - Dyspnoea [None]
